FAERS Safety Report 4781724-3 (Version None)
Quarter: 2005Q3

REPORT INFORMATION
  Report Type: 
  Country: None (occurrence: None)
  Receive Date: 20050927
  Receipt Date: 20050913
  Transmission Date: 20060218
  Serious: Yes (Other)
  Sender: FDA-Public Use
  Company Number: 2005127009

PATIENT
  Age: 14 Year
  Sex: Female
  Weight: 54.4316 kg

DRUGS (2)
  1. DRAMAMINE [Suspect]
     Indication: INTENTIONAL MISUSE
     Dosage: 24 TABLETS ONCE, ORAL
     Route: 048
     Dates: start: 20050913, end: 20050913
  2. ANTIDEPRESSANTS (ANTIDEPRESSANTS) [Concomitant]

REACTIONS (6)
  - DIZZINESS [None]
  - DYSARTHRIA [None]
  - HEADACHE [None]
  - HYPOAESTHESIA ORAL [None]
  - INTENTIONAL MISUSE [None]
  - OVERDOSE [None]
